FAERS Safety Report 13620831 (Version 2)
Quarter: 2017Q3

REPORT INFORMATION
  Report Type: Spontaneous
  Country: AU (occurrence: AU)
  Receive Date: 20170607
  Receipt Date: 20170714
  Transmission Date: 20171127
  Serious: Yes (Other)
  Sender: FDA-Public Use
  Company Number: PHHY2017AU080894

PATIENT
  Sex: Female

DRUGS (2)
  1. LETROZOLE. [Suspect]
     Active Substance: LETROZOLE
     Indication: BREAST CANCER RECURRENT
     Dosage: UNK
     Route: 065
     Dates: start: 20170528
  2. TAMOXIFEN [Suspect]
     Active Substance: TAMOXIFEN
     Indication: BREAST CANCER
     Dosage: UNK
     Route: 065

REACTIONS (14)
  - Lymphocyte count decreased [Unknown]
  - Blood lactate dehydrogenase increased [Unknown]
  - Lung disorder [Unknown]
  - Neutrophil count increased [Unknown]
  - White blood cell count increased [Unknown]
  - Globulins increased [Unknown]
  - Blood chloride decreased [Unknown]
  - Blood phosphorus increased [Unknown]
  - Anion gap increased [Unknown]
  - Blood calcium increased [Unknown]
  - Bone lesion [Unknown]
  - Breast cancer recurrent [Unknown]
  - Malignant neoplasm progression [Unknown]
  - Calcium ionised increased [Unknown]

NARRATIVE: CASE EVENT DATE: 201705
